FAERS Safety Report 8578988-7 (Version None)
Quarter: 2012Q3

REPORT INFORMATION
  Report Type: 
  Country: None (occurrence: None)
  Receive Date: 20120808
  Receipt Date: 20120801
  Transmission Date: 20120928
  Serious: Yes (Other)
  Sender: FDA-Public Use
  Company Number: JP-PFIZER INC-2012187394

PATIENT
  Age: 86 Year
  Sex: Female

DRUGS (2)
  1. UNASYN [Suspect]
     Dosage: UNK
     Route: 042
  2. CLINDAMYCIN HCL [Suspect]
     Dosage: UNK

REACTIONS (1)
  - LIVER DISORDER [None]
